FAERS Safety Report 23621749 (Version 1)
Quarter: 2024Q1

REPORT INFORMATION
  Report Type: Spontaneous
  Country: US (occurrence: None)
  Receive Date: 20240311
  Receipt Date: 20240311
  Transmission Date: 20240410
  Serious: No
  Sender: FDA-Public Use
  Company Number: None

PATIENT
  Age: 58 Year
  Sex: Female

DRUGS (1)
  1. AMBRISENTAN [Suspect]
     Active Substance: AMBRISENTAN

REACTIONS (11)
  - Headache [None]
  - Panic attack [None]
  - Anxiety [None]
  - Palpitations [None]
  - Hypertension [None]
  - COVID-19 [None]
  - Dizziness [None]
  - Blood pressure decreased [None]
  - Feeling hot [None]
  - Insomnia [None]
  - Amnesia [None]
